FAERS Safety Report 8394923-9 (Version None)
Quarter: 2012Q2

REPORT INFORMATION
  Report Type: 
  Country: None (occurrence: None)
  Receive Date: 20120530
  Receipt Date: 20110713
  Transmission Date: 20120825
  Serious: No
  Sender: FDA-Public Use
  Company Number: US-GLAXOSMITHKLINE-A0937181A

PATIENT
  Age: 39 Year
  Sex: Female
  Weight: 57.5 kg

DRUGS (6)
  1. WARFARIN SODIUM [Concomitant]
     Dosage: 2MG PER DAY
     Route: 048
  2. FLOLAN [Suspect]
     Indication: COR PULMONALE CHRONIC
     Route: 042
     Dates: start: 20110303
  3. OMEPRAZOLE [Concomitant]
     Dosage: 40MG AT NIGHT
     Route: 048
  4. APAP TAB [Concomitant]
     Dosage: 2G PER DAY
     Route: 048
  5. SPIRONOLACTONE [Concomitant]
     Dosage: 25MG PER DAY
     Route: 048
  6. VITAMIN D [Concomitant]
     Dosage: 2000UNIT PER DAY

REACTIONS (2)
  - PAIN IN EXTREMITY [None]
  - FIBROMYALGIA [None]
